FAERS Safety Report 11890312 (Version 1)
Quarter: 2016Q1

REPORT INFORMATION
  Report Type: Spontaneous
  Country: FR (occurrence: FR)
  Receive Date: 20160105
  Receipt Date: 20160105
  Transmission Date: 20160526
  Serious: Yes (Death, Other)
  Sender: FDA-Public Use
  Company Number: FR-BRISTOL-MYERS SQUIBB COMPANY-BMS-2015-090671

PATIENT
  Age: 90 Year
  Sex: Male

DRUGS (1)
  1. COUMADINE [Suspect]
     Active Substance: WARFARIN SODIUM
     Indication: PRODUCT USED FOR UNKNOWN INDICATION
     Route: 048

REACTIONS (5)
  - Metabolic acidosis [Fatal]
  - Anaemia [Fatal]
  - Shock haemorrhagic [Fatal]
  - Melaena [Fatal]
  - Haematemesis [Fatal]

NARRATIVE: CASE EVENT DATE: 20131230
